FAERS Safety Report 7669928-3 (Version None)
Quarter: 2011Q3

REPORT INFORMATION
  Report Type: 
  Country: None (occurrence: None)
  Receive Date: 20110808
  Receipt Date: 20110729
  Transmission Date: 20111222
  Serious: Yes (Hospitalization, Other)
  Sender: FDA-Public Use
  Company Number: PHEH2007US15453

PATIENT
  Sex: Male
  Weight: 61.678 kg

DRUGS (46)
  1. ZOMETA [Suspect]
     Dosage: 4 MG, UNK
     Route: 042
     Dates: start: 20060504
  2. NEUPOGEN [Concomitant]
     Dosage: 300 MCG
     Dates: start: 20030101, end: 20050112
  3. ZOLPIDEM [Concomitant]
  4. CHLORHEXIDINE GLUCONATE [Concomitant]
  5. ZANTAC [Concomitant]
  6. MESNA [Concomitant]
     Dosage: 680 MG, UNK
     Route: 042
     Dates: start: 20041228
  7. CYCLOPHOSPHAMIDE [Concomitant]
     Dosage: 6800 MG, UNK
     Route: 042
  8. AMLODIPINE [Concomitant]
  9. ZOMETA [Suspect]
     Dosage: 3.5 MG, UNK
     Route: 042
     Dates: start: 20060411
  10. LISINOPRIL [Concomitant]
  11. DECADRON [Concomitant]
     Dosage: UNK
     Dates: start: 20040601, end: 20060701
  12. CLINDAMYCIN HCL [Concomitant]
     Dosage: 150 MG, UNK
     Route: 048
  13. MELPHALAN HYDROCHLORIDE [Concomitant]
     Dosage: 200 MG, UNK
     Dates: start: 20050119
  14. LOPERAMIDE HCL [Concomitant]
  15. RANITIDINE [Concomitant]
  16. ZOMETA [Suspect]
     Dosage: 3.3 MG, QMO
     Dates: start: 20050419
  17. NIFEDIPINE [Concomitant]
  18. NOVOLIN 70/30 [Concomitant]
  19. MS CONTIN [Concomitant]
     Dosage: 30 MG, BID
     Route: 048
  20. NAPROXEN [Concomitant]
     Dosage: 375 MG, UNK
  21. DARVOCET-N 50 [Concomitant]
  22. MORPHINE SULFATE [Concomitant]
     Indication: PAIN
     Dosage: 10 MG, UNK
     Dates: start: 20050126
  23. TRIMETOPRIM-SULFA ^GEA^ [Concomitant]
     Dosage: UNK
     Dates: start: 20060726, end: 20060826
  24. WARFARIN SODIUM [Concomitant]
     Dosage: 7.5 MG, UNK
  25. DEXAMETHASONE [Concomitant]
  26. ACETAMINOPHEN [Concomitant]
  27. PEPCID [Concomitant]
  28. REVLIMID [Concomitant]
  29. NOVOLOG [Concomitant]
  30. THALIDOMIDE [Concomitant]
     Dosage: UNK
     Dates: end: 20060101
  31. ACYCLOVIR [Concomitant]
     Dosage: 400 MG, BID
     Dates: end: 20051129
  32. MORPHINE SULFATE [Concomitant]
     Dosage: 15 MG, PRN
  33. AVELOX [Concomitant]
  34. CEFEPIME [Concomitant]
     Dosage: 2 G, UNK
  35. ARANESP [Concomitant]
     Dosage: 40 MCG/ML, UNK
     Route: 058
  36. MECLIZINE [Concomitant]
  37. SIMVASTATIN [Concomitant]
  38. PERCOCET [Concomitant]
     Dosage: UNK
     Dates: start: 20051101
  39. OXYCODONE HCL [Concomitant]
  40. FUROSEMIDE [Concomitant]
  41. LEVAQUIN [Concomitant]
  42. OXYCODONE HCL AND ACETAMINOPHEN [Concomitant]
     Indication: PAIN
  43. FLUCONAZOLE [Concomitant]
     Dosage: 400 MG, DAILY
  44. CYPROHEPTADINE HCL [Concomitant]
     Dosage: 4 MG, UNK
     Dates: start: 20050822, end: 20060822
  45. BACTRIM [Concomitant]
     Dosage: UNK
     Dates: start: 20050101
  46. FILGRASTIM [Concomitant]

REACTIONS (34)
  - PAIN IN JAW [None]
  - MASTICATION DISORDER [None]
  - HYPERKALAEMIA [None]
  - OTITIS MEDIA [None]
  - PAIN [None]
  - BONE SWELLING [None]
  - CELLULITIS [None]
  - SPINAL OSTEOARTHRITIS [None]
  - INTERVERTEBRAL DISC PROTRUSION [None]
  - ANXIETY [None]
  - ANHEDONIA [None]
  - ABSCESS JAW [None]
  - EXTRASKELETAL OSSIFICATION [None]
  - HYPOTENSION [None]
  - BONE DISORDER [None]
  - WEIGHT DECREASED [None]
  - GINGIVAL PAIN [None]
  - MYELOMA RECURRENCE [None]
  - BONE PAIN [None]
  - OSTEONECROSIS OF JAW [None]
  - JAW DISORDER [None]
  - TOOTH DISORDER [None]
  - COLONIC POLYP [None]
  - MUCOSAL INFLAMMATION [None]
  - NEUROPATHY PERIPHERAL [None]
  - NEUTROPENIA [None]
  - SALIVARY GLAND ENLARGEMENT [None]
  - RENAL FAILURE ACUTE [None]
  - BONE LESION [None]
  - THROMBOPHLEBITIS [None]
  - INJURY [None]
  - RENAL TUBULAR ACIDOSIS [None]
  - RECTAL HAEMORRHAGE [None]
  - ACIDOSIS HYPERCHLORAEMIC [None]
